FAERS Safety Report 9434658 (Version 2)
Quarter: 2013Q4

REPORT INFORMATION
  Report Type: Spontaneous
  Country: FR (occurrence: FR)
  Receive Date: 20130801
  Receipt Date: 20131108
  Transmission Date: 20140711
  Serious: Yes (Hospitalization)
  Sender: FDA-Public Use
  Company Number: FR-ROCHE-1251686

PATIENT
  Age: 77 Year
  Sex: Male

DRUGS (8)
  1. AVASTIN [Suspect]
     Indication: COLORECTAL CANCER
     Dosage: DOSE RECEIVED : 700 MG?FIRST CYCLE OF FOLFOX-AVASTIN.
     Route: 042
     Dates: start: 20130411
  2. AVASTIN [Suspect]
     Dosage: DOSE RECEIVED : 700 MG?SECOND CYCLE OF FOLFOX-AVASTIN.
     Route: 042
     Dates: start: 20130425, end: 20130425
  3. OXALIPLATIN [Suspect]
     Indication: COLORECTAL CANCER
     Dosage: FIRST CYCLE OF FOLFOX-AVASTIN.
     Route: 042
     Dates: start: 20130411
  4. OXALIPLATIN [Suspect]
     Dosage: SECOND CYCLE OF FOLFOX-AVASTIN.
     Route: 042
     Dates: start: 20130425, end: 20130425
  5. CALCIUM FOLINATE [Suspect]
     Indication: COLORECTAL CANCER
     Dosage: FIRST CYCLE OF FOLFOX-AVASTIN.
     Route: 042
     Dates: start: 20130411
  6. CALCIUM FOLINATE [Suspect]
     Dosage: SECOND CYCLE OF FOLFOX-AVASTIN.
     Route: 042
     Dates: start: 20130425, end: 20130425
  7. FLUOROURACILE [Suspect]
     Indication: COLORECTAL CANCER
     Dosage: FIRST CYCLE OF FOLFOX-AVASTIN.
     Route: 042
     Dates: start: 20130411
  8. FLUOROURACILE [Suspect]
     Dosage: SECOND CYCLE OF FOLFOX-AVASTIN.
     Route: 042
     Dates: start: 20130425, end: 20130425

REACTIONS (2)
  - Tumour perforation [Recovering/Resolving]
  - Peritonitis [Recovering/Resolving]
